FAERS Safety Report 17162871 (Version 2)
Quarter: 2019Q4

REPORT INFORMATION
  Report Type: Spontaneous
  Country: CA (occurrence: CA)
  Receive Date: 20191217
  Receipt Date: 20191221
  Transmission Date: 20200122
  Serious: Yes (Other)
  Sender: FDA-Public Use
  Company Number: CA-CELLTRION INC.-2019CA027290

PATIENT

DRUGS (14)
  1. BACLOFEN. [Concomitant]
     Active Substance: BACLOFEN
     Indication: CROHN^S DISEASE
     Dosage: 10 MG, UNK
  2. IRON [Concomitant]
     Active Substance: IRON
     Dosage: UNK
     Route: 042
  3. MERCAPTOPURINE. [Suspect]
     Active Substance: MERCAPTOPURINE
     Dosage: UNK
     Route: 065
  4. MESALAMINE. [Suspect]
     Active Substance: MESALAMINE
     Indication: CROHN^S DISEASE
     Dosage: UNK
     Route: 065
  5. PREDNISONE. [Concomitant]
     Active Substance: PREDNISONE
     Dosage: 40 MG, UNK
  6. INFLIXIMAB PFIZER (UNKNOWN) [Suspect]
     Active Substance: INFLIXIMAB
     Dosage: 250 MG, 1 EVERY 6 WEEKS
     Route: 042
  7. AZATHIOPRINE. [Suspect]
     Active Substance: AZATHIOPRINE
     Dosage: UNK
     Route: 065
  8. CODEINE [Suspect]
     Active Substance: CODEINE
     Dosage: 10 MG, UNK
     Route: 065
  9. HUMIRA [Suspect]
     Active Substance: ADALIMUMAB
     Indication: CROHN^S DISEASE
     Dosage: 550 MG, UNK
     Route: 058
  10. DIPHTHERIA - TETANUS - PERTUSSIS VACCINE ADSORBED [Concomitant]
     Dosage: UNK
  11. INFLIXIMAB PFIZER (UNKNOWN) [Suspect]
     Active Substance: INFLIXIMAB
     Indication: CROHN^S DISEASE
     Dosage: 250 MG, 1 EVERY 2 WEEKS
     Route: 042
  12. INFLIXIMAB PFIZER (UNKNOWN) [Suspect]
     Active Substance: INFLIXIMAB
     Dosage: 250 MG, 1 EVERY 8 WEEKS
     Route: 042
  13. TETANUS TOXOID [Concomitant]
     Active Substance: TETANUS TOXOIDS
     Dosage: UNK
  14. METHOTREXATE SODIUM. [Suspect]
     Active Substance: METHOTREXATE SODIUM
     Dosage: UNK
     Route: 065

REACTIONS (8)
  - Abdominal pain [Unknown]
  - Off label use [Unknown]
  - General physical health deterioration [Unknown]
  - Myocardial infarction [Unknown]
  - Crohn^s disease [Unknown]
  - Diarrhoea [Unknown]
  - Inflammation [Unknown]
  - Drug ineffective [Unknown]
